FAERS Safety Report 7360027-7 (Version None)
Quarter: 2011Q1

REPORT INFORMATION
  Report Type: 
  Country: None (occurrence: None)
  Receive Date: 20110317
  Receipt Date: 20110202
  Transmission Date: 20110831
  Serious: Yes (Life-Threatening, Hospitalization, Other)
  Sender: FDA-Public Use
  Company Number: CZ-BAYER-2011-010456

PATIENT
  Sex: Female

DRUGS (2)
  1. ULTRAVIST 150 [Suspect]
     Indication: COMPUTERISED TOMOGRAM
     Dosage: 100 ML, UNK
     Route: 040
     Dates: start: 20110126
  2. PREDNISONE [Concomitant]
     Dosage: 20 MG, HS
     Route: 048
     Dates: start: 20110126

REACTIONS (1)
  - MUSCLE SPASMS [None]
